FAERS Safety Report 7544197-3 (Version None)
Quarter: 2011Q2

REPORT INFORMATION
  Report Type: 
  Country: None (occurrence: None)
  Receive Date: 20110613
  Receipt Date: 20060724
  Transmission Date: 20111010
  Serious: Yes (Other)
  Sender: FDA-Public Use
  Company Number: PHHO2005CA15945

PATIENT
  Sex: Male

DRUGS (1)
  1. SANDOSTATIN LAR [Suspect]
     Indication: CARCINOID TUMOUR
     Dosage: 30 MG, EVERY 3 WEEKS
     Dates: start: 20010320

REACTIONS (3)
  - BRADYCARDIA [None]
  - HYPERTENSION [None]
  - HEART RATE INCREASED [None]
